FAERS Safety Report 19706869 (Version 1)
Quarter: 2021Q3

REPORT INFORMATION
  Report Type: Spontaneous
  Country: US (occurrence: US)
  Receive Date: 20210816
  Receipt Date: 20210816
  Transmission Date: 20211014
  Serious: No
  Sender: FDA-Public Use
  Company Number: None

PATIENT
  Age: 55 Year
  Sex: Male

DRUGS (2)
  1. HALOPERIDOL. [Suspect]
     Active Substance: HALOPERIDOL
     Indication: PSYCHOTIC DISORDER
     Dosage: ?          OTHER FREQUENCY:ONCE;?
     Route: 030
     Dates: start: 20210712, end: 20210712
  2. HALOPERIDOL. [Suspect]
     Active Substance: HALOPERIDOL
     Indication: AGITATION
     Dosage: ?          OTHER FREQUENCY:ONCE;?
     Route: 030
     Dates: start: 20210712, end: 20210712

REACTIONS (2)
  - Oromandibular dystonia [None]
  - Respiratory distress [None]

NARRATIVE: CASE EVENT DATE: 20210712
